FAERS Safety Report 26035443 (Version 1)
Quarter: 2025Q4

REPORT INFORMATION
  Report Type: Report from Study
  Country: EG (occurrence: EG)
  Receive Date: 20251112
  Receipt Date: 20251112
  Transmission Date: 20260118
  Serious: Yes (Death, Other)
  Sender: BAYER HEALTHCARE PHARMACEUTICALS INC.
  Company Number: EG-BAYER-2025A149265

PATIENT
  Sex: Male

DRUGS (2)
  1. NEXAVAR [Suspect]
     Active Substance: SORAFENIB
     Indication: Hepatocellular carcinoma
     Dosage: 400 MG, BID
  2. NEXAVAR [Suspect]
     Active Substance: SORAFENIB
     Indication: Hepatic cirrhosis

REACTIONS (2)
  - Death [Fatal]
  - Toxicity to various agents [None]
